FAERS Safety Report 16454516 (Version 2)
Quarter: 2020Q2

REPORT INFORMATION
  Report Type: Spontaneous
  Country: US (occurrence: US)
  Receive Date: 20190619
  Receipt Date: 20200616
  Transmission Date: 20200713
  Serious: No
  Sender: FDA-Public Use
  Company Number: US-ROCHE-2242310

PATIENT
  Age: 73 Year
  Sex: Female
  Weight: 76.73 kg

DRUGS (2)
  1. ACTEMRA [Suspect]
     Active Substance: TOCILIZUMAB
     Indication: RHEUMATOID ARTHRITIS
     Dosage: ONGOING: YES
     Route: 058
  2. ACTEMRA [Suspect]
     Active Substance: TOCILIZUMAB
     Route: 058
     Dates: start: 20180511, end: 20190107

REACTIONS (5)
  - Pharyngeal disorder [Recovered/Resolved]
  - Product dose omission [Unknown]
  - Weight decreased [Not Recovered/Not Resolved]
  - Device issue [Unknown]
  - Feeding disorder [Unknown]

NARRATIVE: CASE EVENT DATE: 20190107
